FAERS Safety Report 9885053 (Version 2)
Quarter: 2014Q1

REPORT INFORMATION
  Report Type: Report from Study
  Country: CA (occurrence: CA)
  Receive Date: 20140210
  Receipt Date: 20140210
  Transmission Date: 20141002
  Serious: Yes (Other)
  Sender: FDA-Public Use
  Company Number: CA-JNJFOC-20140112367

PATIENT
  Age: 58 Year
  Sex: Female
  Weight: 62.2 kg

DRUGS (9)
  1. REMICADE [Suspect]
     Indication: RHEUMATOID ARTHRITIS
     Route: 042
     Dates: start: 20110911
  2. METHOTREXATE [Concomitant]
     Route: 058
  3. LIPITOR [Concomitant]
     Route: 065
  4. ASA [Concomitant]
     Route: 065
  5. FOLIC ACID [Concomitant]
     Route: 065
  6. OMEGA 3 [Concomitant]
     Route: 065
  7. VITAMIN D [Concomitant]
     Route: 065
  8. MULTIVITAMINS [Concomitant]
     Route: 065
  9. VITAMIN C [Concomitant]
     Route: 065

REACTIONS (3)
  - Pneumonia [Recovered/Resolved]
  - Hand fracture [Recovered/Resolved]
  - Fall [Recovered/Resolved]
